FAERS Safety Report 5006541-0 (Version None)
Quarter: 2006Q2

REPORT INFORMATION
  Report Type: 
  Country: None (occurrence: None)
  Receive Date: 20060516
  Receipt Date: 20060501
  Transmission Date: 20061013
  Serious: Yes (Other)
  Sender: FDA-Public Use
  Company Number: 2006PV013017

PATIENT
  Age: 52 Year
  Sex: Female
  Weight: 92.0802 kg

DRUGS (9)
  1. BYETTA [Suspect]
     Indication: DIABETES MELLITUS NON-INSULIN-DEPENDENT
     Dosage: 5 MCG; BID; SC
     Route: 058
     Dates: start: 20051206, end: 20060321
  2. BYETTA [Suspect]
     Indication: DIABETES MELLITUS NON-INSULIN-DEPENDENT
     Dosage: 5 MCG; BID; SC
     Route: 058
     Dates: start: 20050328
  3. LOPID [Concomitant]
  4. LOVASTATIN [Concomitant]
  5. LOPRESSOR [Concomitant]
  6. DIOVAN HCT [Concomitant]
  7. ZETIA [Concomitant]
  8. NOVOLOG [Concomitant]
  9. ACTOS [Concomitant]

REACTIONS (6)
  - BLOOD GLUCOSE DECREASED [None]
  - CHOLECYSTITIS [None]
  - DYSKINESIA [None]
  - NAUSEA [None]
  - PANCREATITIS [None]
  - VOMITING [None]
